FAERS Safety Report 9243075 (Version 1)
Quarter: 2013Q2

REPORT INFORMATION
  Report Type: Spontaneous
  Country: CA (occurrence: CA)
  Receive Date: 20130419
  Receipt Date: 20130419
  Transmission Date: 20140414
  Serious: Yes (Hospitalization)
  Sender: FDA-Public Use
  Company Number: CA-ELI_LILLY_AND_COMPANY-CA201304003874

PATIENT
  Age: 56 Year
  Sex: Female

DRUGS (18)
  1. FORTEO [Suspect]
     Indication: OSTEOPOROSIS
     Dosage: 20 UG, QD
     Route: 058
     Dates: start: 20110324, end: 201107
  2. FORTEO [Suspect]
     Dosage: 20 UG, QD
     Route: 058
     Dates: start: 201108
  3. PLAVIX [Concomitant]
     Dosage: UNK
  4. LYRICA [Concomitant]
     Dosage: UNK
  5. DOMPERIDONE [Concomitant]
     Dosage: UNK
  6. PANTOLOC                           /01263204/ [Concomitant]
     Dosage: UNK
  7. COLACE [Concomitant]
     Dosage: UNK
  8. CALCIUM WITH VITAMIN D             /00944201/ [Concomitant]
     Dosage: UNK
  9. D-TABS [Concomitant]
     Dosage: UNK
  10. ADVAIR [Concomitant]
     Dosage: UNK
  11. ALVESCO [Concomitant]
     Dosage: UNK
  12. SPIRIVA [Concomitant]
     Dosage: UNK
  13. SINGULAIR [Concomitant]
     Dosage: UNK
  14. AMITRIPTYLINE [Concomitant]
     Dosage: UNK
  15. PRAVACHOL [Concomitant]
     Dosage: UNK
  16. CLONAZEPAM [Concomitant]
     Dosage: UNK
  17. FENTANYL [Concomitant]
     Dosage: 18 UG, UNK
  18. XOLAIR [Concomitant]
     Dosage: UNK

REACTIONS (1)
  - Back pain [Recovered/Resolved]
